FAERS Safety Report 4842869-2 (Version None)
Quarter: 2005Q4

REPORT INFORMATION
  Report Type: 
  Country: None (occurrence: None)
  Receive Date: 20051130
  Receipt Date: 20051114
  Transmission Date: 20060501
  Serious: Yes (Hospitalization)
  Sender: FDA-Public Use
  Company Number: 032-58

PATIENT
  Sex: Male

DRUGS (9)
  1. TEVETEN [Suspect]
     Indication: HYPERTENSION
     Dosage: 600 MG QD PO
     Route: 048
     Dates: start: 20050101, end: 20050101
  2. LOSARTAN [Concomitant]
  3. FRUSEMIDE [Concomitant]
  4. DILTIAZEM HCL [Concomitant]
  5. WARFARIN SODIUM [Concomitant]
  6. BECLOMETHASONE DIPROPIONATE [Concomitant]
  7. SALBUTAMOL [Concomitant]
  8. MONTELUKAST [Concomitant]
  9. PERINDOPRIL [Concomitant]

REACTIONS (4)
  - ASTHMA [None]
  - CARDIAC FAILURE [None]
  - CONDITION AGGRAVATED [None]
  - DYSPNOEA [None]
